FAERS Safety Report 4673226-X (Version None)
Quarter: 2005Q2

REPORT INFORMATION
  Report Type: 
  Country: None (occurrence: None)
  Receive Date: 20050524
  Receipt Date: 20050524
  Transmission Date: 20051028
  Serious: Yes (Disabling, Other)
  Sender: FDA-Public Use
  Company Number: None

PATIENT
  Age: 39 Year
  Sex: Male
  Weight: 98.8842 kg

DRUGS (1)
  1. CARBAMAZEPINE [Suspect]
     Indication: COMPLEX PARTIAL SEIZURES
     Dosage: 1 1/2 TABS PO TID
     Route: 048
     Dates: start: 20041201, end: 20050501

REACTIONS (3)
  - ABNORMAL BEHAVIOUR [None]
  - COMPLEX PARTIAL SEIZURES [None]
  - PHARMACEUTICAL PRODUCT COMPLAINT [None]
